FAERS Safety Report 19743181 (Version 1)
Quarter: 2021Q3

REPORT INFORMATION
  Report Type: Report from Study
  Country: US (occurrence: US)
  Receive Date: 20210825
  Receipt Date: 20210825
  Transmission Date: 20211014
  Serious: Yes (Death)
  Sender: FDA-Public Use
  Company Number: US-PFIZER INC-202101069991

PATIENT

DRUGS (2)
  1. FLUCONAZOLE. [Suspect]
     Active Substance: FLUCONAZOLE
     Indication: FUNGAL PERITONITIS
     Dosage: UNK
  2. AMPHOTERICIN B LIPID COMPLEX [Suspect]
     Active Substance: AMPHOTERICIN B
     Indication: FUNGAL PERITONITIS
     Dosage: UNK

REACTIONS (1)
  - Drug ineffective [Fatal]
